FAERS Safety Report 4302641-9 (Version None)
Quarter: 2004Q1

REPORT INFORMATION
  Report Type: 
  Country: None (occurrence: None)
  Receive Date: 20040223
  Receipt Date: 20040223
  Transmission Date: 20041129
  Serious: Yes (Death)
  Sender: FDA-Public Use
  Company Number: None

PATIENT
  Age: 71 Year
  Sex: Female
  Weight: 99.7913 kg

DRUGS (1)
  1. WARFARIN [Suspect]
     Indication: MITRAL VALVE REPLACEMENT
     Dosage: ORAL
     Route: 048

REACTIONS (2)
  - FALL [None]
  - SUBDURAL HAEMATOMA [None]
